FAERS Safety Report 23778679 (Version 1)
Quarter: 2024Q2

REPORT INFORMATION
  Report Type: Spontaneous
  Country: CN (occurrence: CN)
  Receive Date: 20240424
  Receipt Date: 20240424
  Transmission Date: 20240716
  Serious: Yes (Other)
  Sender: FDA-Public Use
  Company Number: CN-WOODWARD-2024-CN-000133

PATIENT
  Age: 36 Year
  Sex: Female

DRUGS (4)
  1. RABEPRAZOLE SODIUM [Suspect]
     Active Substance: RABEPRAZOLE SODIUM
     Indication: Helicobacter infection
     Dosage: 4.0 DOSAGE FORM (2 DOSAGE FORM, 1 IN 12 HOUR); BEFORE MEALS
     Route: 048
     Dates: start: 20240408, end: 20240415
  2. FURAZOLIDONE [Suspect]
     Active Substance: FURAZOLIDONE
     Dosage: 4.0 DOSAGE FORM (2 DOSAGE FORM, 1 IN 12 HOUR)
     Route: 048
     Dates: start: 20240408, end: 20240415
  3. BISMUTH SUBCITRATE [Suspect]
     Active Substance: BISMUTH SUBCITRATE
     Dosage: 16.0 DOSAGE FORM (4 DOSAGE FORM, 2 IN 12 HOUR)
     Route: 048
     Dates: start: 20240408, end: 20240415
  4. AMOXICILLIN [Suspect]
     Active Substance: AMOXICILLIN
     Dosage: 64.0 DOSAGE FORM (8 DOSAGE FORM, 4 IN 12 HOUR)
     Route: 048
     Dates: start: 20240408, end: 20240415

REACTIONS (2)
  - Pruritus [Unknown]
  - Rash erythematous [Unknown]

NARRATIVE: CASE EVENT DATE: 20240414
